FAERS Safety Report 24282099 (Version 1)
Quarter: 2024Q3

REPORT INFORMATION
  Report Type: Spontaneous
  Country: US (occurrence: None)
  Receive Date: 20240903
  Receipt Date: 20240903
  Transmission Date: 20241016
  Serious: No
  Sender: Public
  Company Number: None

PATIENT
  Age: 67 Year
  Sex: Female
  Weight: 76.8 kg

DRUGS (1)
  1. CARVYKTI [Suspect]
     Active Substance: CILTACABTAGENE AUTOLEUCEL
     Indication: Plasma cell myeloma
     Dosage: OTHER FREQUENCY : ONCE;?
     Route: 042
     Dates: start: 20240703, end: 20240703

REACTIONS (7)
  - Urinary retention [None]
  - Pain [None]
  - Pyrexia [None]
  - Cytokine release syndrome [None]
  - Hypoaesthesia oral [None]
  - Hypoaesthesia [None]
  - Hypoaesthesia [None]

NARRATIVE: CASE EVENT DATE: 20240711
